FAERS Safety Report 5938582-0 (Version None)
Quarter: 2008Q4

REPORT INFORMATION
  Report Type: 
  Country: None (occurrence: None)
  Receive Date: 20081103
  Receipt Date: 20081030
  Transmission Date: 20090506
  Serious: Yes (Death, Hospitalization, Disabling, Other)
  Sender: FDA-Public Use
  Company Number: PHHY2008BR14874

PATIENT
  Sex: Male
  Weight: 16 kg

DRUGS (44)
  1. SANDIMMUNE [Suspect]
     Indication: TRANSPLANT
     Dosage: 190 MG/DAY
     Dates: start: 20071129, end: 20080107
  2. SANDIMMUNE [Suspect]
     Indication: PROPHYLAXIS AGAINST GRAFT VERSUS HOST DISEASE
  3. METHYLPREDNISOLONE 16MG TAB [Concomitant]
  4. FLUCONAZOLE [Concomitant]
  5. ACYCLOVIR [Concomitant]
  6. OMEPRAZOLE [Concomitant]
  7. ONDANSETRON [Concomitant]
  8. AMLODIPINE [Concomitant]
  9. URSODIOL [Concomitant]
  10. TPN [Concomitant]
  11. ZOLBEN [Concomitant]
  12. AMIKACIN [Concomitant]
  13. DIGESAN [Concomitant]
  14. CANCIDAS [Concomitant]
  15. CAPOTEN [Concomitant]
  16. MAXCEF [Concomitant]
  17. CYCLOPHOSPHAMIDE [Concomitant]
  18. CIPROFLAXACIN [Concomitant]
  19. DIPYRONE TAB [Concomitant]
  20. SCOPOLAMINE [Concomitant]
  21. FENTANYL [Concomitant]
  22. ZOLTEC [Concomitant]
  23. SOLU-CORTEF [Concomitant]
  24. INSULIN [Concomitant]
  25. KETAMINE HCL [Concomitant]
  26. MERONEM [Concomitant]
  27. MITEXAN (MENSA) [Concomitant]
  28. PLASIL [Concomitant]
  29. FLAGYL [Concomitant]
  30. DORMONID [Concomitant]
  31. MORPHINE [Concomitant]
  32. METHOTREXATE [Concomitant]
  33. OMEPRAZOLE [Concomitant]
  34. ZOFRAN [Concomitant]
  35. BACTRIM [Concomitant]
  36. VANCOMYCIN HYDROCHLORIDE [Concomitant]
  37. ATROPINE [Concomitant]
  38. ABELCET [Concomitant]
  39. PHENOBARBITAL TAB [Concomitant]
  40. HIDANTAL [Concomitant]
  41. LEUCOVORIN CALCIUM [Concomitant]
     Dosage: 15 MG
  42. TAZOCIN [Concomitant]
  43. IBUPROFEN TABLETS [Concomitant]
  44. FIBRASTINE [Concomitant]

REACTIONS (17)
  - AMAUROSIS [None]
  - BLOOD PRESSURE ABNORMAL [None]
  - COMA [None]
  - CONVULSION [None]
  - DEPRESSED LEVEL OF CONSCIOUSNESS [None]
  - DEPRESSION [None]
  - FATIGUE [None]
  - GRAFT VERSUS HOST DISEASE [None]
  - HEADACHE [None]
  - INFECTION [None]
  - MECHANICAL VENTILATION [None]
  - NEUROTOXICITY [None]
  - NYSTAGMUS [None]
  - PHOTOPHOBIA [None]
  - QUADRIPARESIS [None]
  - RESPIRATORY FAILURE [None]
  - SHOCK [None]
